FAERS Safety Report 11536976 (Version 1)
Quarter: 2015Q3

REPORT INFORMATION
  Report Type: Spontaneous
  Country: US (occurrence: US)
  Receive Date: 20150922
  Receipt Date: 20150922
  Transmission Date: 20151125
  Serious: Yes (Other)
  Sender: FDA-Public Use
  Company Number: US-PFIZER INC-2015306031

PATIENT
  Sex: Male

DRUGS (1)
  1. LYRICA [Suspect]
     Active Substance: PREGABALIN
     Indication: NEUROPATHY PERIPHERAL
     Dosage: UNK

REACTIONS (6)
  - Hip deformity [Unknown]
  - Retinal detachment [Unknown]
  - Blindness [Not Recovered/Not Resolved]
  - Staphylococcal infection [Unknown]
  - Musculoskeletal discomfort [Unknown]
  - Arthropathy [Unknown]
